FAERS Safety Report 21029223 (Version 2)
Quarter: 2022Q3

REPORT INFORMATION
  Report Type: Spontaneous
  Country: IT (occurrence: IT)
  Receive Date: 20220630
  Receipt Date: 20220715
  Transmission Date: 20221027
  Serious: Yes (Other)
  Sender: FDA-Public Use
  Company Number: IT-TEVA-2022-IT-2049731

PATIENT
  Age: 17 Year
  Sex: Male

DRUGS (14)
  1. METHOTREXATE [Suspect]
     Active Substance: METHOTREXATE
     Indication: T-cell type acute leukaemia
     Dosage: CONSOLIDATION PHASE
     Route: 065
  2. BORTEZOMIB [Suspect]
     Active Substance: BORTEZOMIB
     Indication: T-cell type acute leukaemia
     Dosage: TACL CONSORTIUM 2005-003 THERAPY
     Route: 042
  3. DOXORUBICIN [Suspect]
     Active Substance: DOXORUBICIN
     Indication: T-cell type acute leukaemia
     Dosage: TACL CONSORTIUM 2005-003 THERAPY
     Route: 042
  4. FLUDARABINE [Suspect]
     Active Substance: FLUDARABINE PHOSPHATE
     Indication: T-cell type acute leukaemia
     Dosage: PART OF FLAG PROTOCOL
     Route: 041
  5. VINCRISTINE [Suspect]
     Active Substance: VINCRISTINE
     Indication: T-cell type acute leukaemia
     Dosage: TACL CONSORTIUM 2005-003 THERAPY
     Route: 042
  6. METHYLPREDNISOLONE [Suspect]
     Active Substance: METHYLPREDNISOLONE
     Indication: T-cell type acute leukaemia
     Route: 065
  7. DEXAMETHASONE [Suspect]
     Active Substance: DEXAMETHASONE
     Indication: T-cell type acute leukaemia
     Dosage: RE-INDUCTION THERAPY
     Route: 065
  8. DEXAMETHASONE [Suspect]
     Active Substance: DEXAMETHASONE
     Dosage: TACL CONSORTIUM 2005-003 THERAPY
     Route: 048
  9. ANAKINRA [Suspect]
     Active Substance: ANAKINRA
     Indication: T-cell type acute leukaemia
     Dosage: 100 MILLIGRAM DAILY;
     Route: 058
  10. ANAKINRA [Suspect]
     Active Substance: ANAKINRA
     Dosage: 200 MILLIGRAM DAILY;
     Route: 058
  11. CYTARABINE [Suspect]
     Active Substance: CYTARABINE
     Indication: T-cell type acute leukaemia
     Dosage: PART OF FLAG PROTOCOL
     Route: 041
  12. CYTARABINE [Suspect]
     Active Substance: CYTARABINE
     Dosage: PART OF TACL CONSORTIUM 2005-003 THERAPY
     Route: 037
  13. DOXORUBICIN [Suspect]
     Active Substance: DOXORUBICIN
     Indication: T-cell type acute leukaemia
     Route: 065
  14. PEGASPARGASE [Suspect]
     Active Substance: PEGASPARGASE
     Indication: T-cell type acute leukaemia
     Dosage: TACL CONSORTIUM 2005-003 THERAPY
     Route: 030

REACTIONS (10)
  - Renal disorder [Unknown]
  - Hypertension [Unknown]
  - Skin striae [Unknown]
  - Cytopenia [Unknown]
  - Venoocclusive liver disease [Unknown]
  - Sepsis [Unknown]
  - Cystitis haemorrhagic [Unknown]
  - Cytomegalovirus hepatitis [Unknown]
  - Renal failure [Unknown]
  - Cardiac failure [Unknown]
